FAERS Safety Report 5134639-5 (Version None)
Quarter: 2006Q4

REPORT INFORMATION
  Report Type: 
  Country: None (occurrence: None)
  Receive Date: 20061025
  Receipt Date: 20060914
  Transmission Date: 20070319
  Serious: Yes (Hospitalization)
  Sender: FDA-Public Use
  Company Number: FR-GLAXOSMITHKLINE-B0439218A

PATIENT
  Age: 60 Year
  Sex: Male

DRUGS (2)
  1. ARIXTRA [Suspect]
     Dosage: 10MG PER DAY
     Route: 058
     Dates: start: 20060101, end: 20060101
  2. PREVISCAN [Concomitant]
     Route: 048
     Dates: start: 20060101

REACTIONS (3)
  - MUSCLE HAEMORRHAGE [None]
  - PULMONARY EMBOLISM [None]
  - RETROPERITONEAL HAEMORRHAGE [None]
